FAERS Safety Report 5259530-5 (Version None)
Quarter: 2007Q1

REPORT INFORMATION
  Report Type: 
  Country: None (occurrence: None)
  Receive Date: 20061117
  Receipt Date: 20060831
  Transmission Date: 20070707
  Serious: Yes (Hospitalization)
  Sender: FDA-Public Use
  Company Number: US-JNJFOC-20060900426

PATIENT
  Age: 80 Year
  Sex: Female

DRUGS (2)
  1. LEVAQUIN [Suspect]
     Indication: SINUSITIS
  2. FLAGYL (UNSPECIFIED) METRONIDAZOLE [Concomitant]

REACTIONS (1)
  - DIARRHOEA [None]
